FAERS Safety Report 5191497-0 (Version None)
Quarter: 2006Q4

REPORT INFORMATION
  Report Type: 
  Country: None (occurrence: None)
  Receive Date: 20061219
  Receipt Date: 20061219
  Transmission Date: 20070319
  Serious: Yes (Other)
  Sender: FDA-Public Use
  Company Number: None

PATIENT
  Age: 84 Year
  Sex: Male
  Weight: 60.9 kg

DRUGS (3)
  1. TAXOTERE [Suspect]
     Indication: OESOPHAGEAL CARCINOMA
     Dosage: 50MG  DAYS 1, 8 Q 21D   IV
     Route: 042
     Dates: start: 20060926, end: 20061122
  2. OXALIPLATIN [Suspect]
     Indication: OESOPHAGEAL CARCINOMA
     Dosage: 72MG  DAYS 1, 8 Q21D  IV
     Route: 042
     Dates: start: 20060926, end: 20061122
  3. CAPECITABINE [Suspect]
     Dosage: 2500MG/DAY  DAYS 1-10,Q21D  PO
     Route: 048
     Dates: start: 20060926, end: 20061122

REACTIONS (1)
  - PULMONARY EMBOLISM [None]
